FAERS Safety Report 17004603 (Version 2)
Quarter: 2019Q4

REPORT INFORMATION
  Report Type: Spontaneous
  Country: US (occurrence: US)
  Receive Date: 20191107
  Receipt Date: 20191202
  Transmission Date: 20200122
  Serious: Yes (Hospitalization)
  Sender: FDA-Public Use
  Company Number: US-PFIZER INC-2018424571

PATIENT
  Age: 72 Year
  Sex: Female
  Weight: 57.71 kg

DRUGS (2)
  1. REVATIO [Suspect]
     Active Substance: SILDENAFIL CITRATE
     Indication: PULMONARY ARTERIAL HYPERTENSION
     Dosage: 40 MG, 3X/DAY (I TAKE 2 TABLETS 3 TIMES A DAY)
     Route: 048
     Dates: start: 20111212
  2. REVATIO [Suspect]
     Active Substance: SILDENAFIL CITRATE
     Indication: PULMONARY HYPERTENSION
     Dosage: 40 MG, 3X/DAY (I TAKE 2 TABLETS 3 TIMES A DAY)
     Route: 048
     Dates: start: 2009

REACTIONS (9)
  - Feeling abnormal [Unknown]
  - Prescribed overdose [Unknown]
  - Malaise [Unknown]
  - Vision blurred [Unknown]
  - Respiratory disorder [Unknown]
  - Thinking abnormal [Unknown]
  - Influenza [Unknown]
  - Pneumonia [Unknown]
  - Bronchitis [Recovering/Resolving]

NARRATIVE: CASE EVENT DATE: 2009
